FAERS Safety Report 24212990 (Version 1)
Quarter: 2024Q3

REPORT INFORMATION
  Report Type: Report from Study
  Country: CO (occurrence: CO)
  Receive Date: 20240815
  Receipt Date: 20240815
  Transmission Date: 20241016
  Serious: Yes (Death, Life-Threatening)
  Sender: AMGEN
  Company Number: CO-AMGEN-COLSL2024159308

PATIENT
  Age: 93 Year
  Sex: Male

DRUGS (1)
  1. PROLIA [Suspect]
     Active Substance: DENOSUMAB
     Indication: Osteoporosis
     Dosage: 60 MILLIGRAM, Q6MO
     Route: 058
     Dates: start: 20230805, end: 20240205

REACTIONS (3)
  - Urinary tract infection [Fatal]
  - Joint dislocation [Recovered/Resolved]
  - Fall [Recovered/Resolved]

NARRATIVE: CASE EVENT DATE: 20240309
